FAERS Safety Report 9263367 (Version 1)
Quarter: 2013Q2

REPORT INFORMATION
  Report Type: Report from Study
  Country: US (occurrence: US)
  Receive Date: 20130430
  Receipt Date: 20130430
  Transmission Date: 20140414
  Serious: No
  Sender: FDA-Public Use
  Company Number: US-ABBOTT-12P-163-0973270-00

PATIENT
  Age: 18 Year
  Sex: Male

DRUGS (10)
  1. CREON [Suspect]
     Indication: PANCREATIC ENZYMES DECREASED
     Dates: start: 20120816, end: 20120821
  2. CREON [Suspect]
     Dates: start: 20120823
  3. TOPAMAX [Concomitant]
     Indication: CONVULSION
  4. CLOBAZAM [Concomitant]
     Indication: CEREBRAL PALSY
  5. DILANTIN [Concomitant]
     Indication: CONVULSION
  6. POTASSIUM CHLORIDE [Concomitant]
     Indication: BLOOD POTASSIUM DECREASED
  7. KEPPRA [Concomitant]
     Indication: CONVULSION
  8. VITAMIN D [Concomitant]
     Indication: VITAMIN SUPPLEMENTATION
  9. LASIX [Concomitant]
     Indication: OEDEMA
  10. DIURIL [Concomitant]
     Indication: HYPERTENSION

REACTIONS (5)
  - Moaning [Recovered/Resolved]
  - Abdominal rigidity [Recovered/Resolved]
  - Abdominal distension [Recovered/Resolved]
  - Gastrointestinal sounds abnormal [Recovered/Resolved]
  - Abdominal discomfort [Recovered/Resolved]
